FAERS Safety Report 6170866-6 (Version None)
Quarter: 2009Q2

REPORT INFORMATION
  Report Type: 
  Country: None (occurrence: None)
  Receive Date: 20090427
  Receipt Date: 20090410
  Transmission Date: 20091009
  Serious: Yes (Life-Threatening, Hospitalization)
  Sender: FDA-Public Use
  Company Number: 8044730

PATIENT
  Age: 39 Year
  Sex: Female
  Weight: 79.5 kg

DRUGS (4)
  1. LORTAB [Suspect]
     Dates: start: 20090101, end: 20090101
  2. VALIUM [Suspect]
     Dates: start: 20090101, end: 20090101
  3. PEG-INTRON [Suspect]
     Indication: HEPATITIS C
     Dates: start: 20090102
  4. REBETOL [Suspect]
     Indication: HEPATITIS C
     Dates: start: 20090102

REACTIONS (11)
  - ALCOHOL USE [None]
  - ASTHENIA [None]
  - CRYING [None]
  - DEPRESSION [None]
  - FAMILY STRESS [None]
  - FLUID INTAKE REDUCED [None]
  - HYPOPHAGIA [None]
  - INSOMNIA [None]
  - PNEUMONIA [None]
  - SUICIDE ATTEMPT [None]
  - WEIGHT DECREASED [None]
